FAERS Safety Report 16709159 (Version 3)
Quarter: 2019Q3

REPORT INFORMATION
  Report Type: Report from Study
  Country: GB (occurrence: GB)
  Receive Date: 20190816
  Receipt Date: 20190828
  Transmission Date: 20191004
  Serious: No
  Sender: FDA-Public Use
  Company Number: GB-ROCHE-2378802

PATIENT
  Age: 35 Year
  Sex: Female
  Weight: 81.7 kg

DRUGS (12)
  1. CLOBETASONE BUTYRATE [Concomitant]
     Active Substance: CLOBETASONE BUTYRATE
     Indication: RASH
     Route: 061
     Dates: start: 20190711
  2. FLUCLOXACILLIN [Concomitant]
     Active Substance: FLUCLOXACILLIN
     Indication: INFECTION
     Route: 048
     Dates: start: 20181229
  3. CALCICHEW D3 FORTE [Concomitant]
     Active Substance: CALCIUM\CHOLECALCIFEROL
     Indication: ELECTROLYTE IMBALANCE
     Route: 048
     Dates: start: 20190207
  4. RUCAPARIB [Suspect]
     Active Substance: RUCAPARIB
     Indication: TRIPLE NEGATIVE BREAST CANCER
  5. ATEZOLIZUMAB. [Suspect]
     Active Substance: ATEZOLIZUMAB
     Indication: TRIPLE NEGATIVE BREAST CANCER
  6. DIFFLAM [Concomitant]
     Active Substance: BENZYDAMINE HYDROCHLORIDE
     Indication: OROPHARYNGEAL PAIN
     Route: 048
     Dates: start: 20190401
  7. LEVOTHYROXINE. [Concomitant]
     Active Substance: LEVOTHYROXINE
     Indication: HYPOTHYROIDISM
     Route: 048
     Dates: start: 20190620
  8. COLECALCIFEROL [Concomitant]
     Active Substance: CHOLECALCIFEROL
     Indication: VITAMIN D DECREASED
     Route: 048
     Dates: start: 20190711
  9. CLOBETASOL PROPIONATE. [Concomitant]
     Active Substance: CLOBETASOL PROPIONATE
     Indication: DRY SKIN
     Route: 061
     Dates: start: 20190711
  10. ATEZOLIZUMAB. [Suspect]
     Active Substance: ATEZOLIZUMAB
     Indication: OVARIAN CANCER
     Dosage: THE MOST RECENT AND THE LAST DOSE OF ATEZOLIZUMAB PRIOR TO AE/SAE ONSET 1200MG ON 11/JUL/2019
     Route: 042
     Dates: start: 20181214
  11. RUCAPARIB [Suspect]
     Active Substance: RUCAPARIB
     Indication: OVARIAN CANCER
     Dosage: DOSE OF LAST RUCAPARIB ADMINISTERED PRIOR TO AE/SAE  ONSET 300 MG
     Route: 048
     Dates: start: 20181122
  12. PIRITON [Concomitant]
     Active Substance: CHLORPHENIRAMINE MALEATE
     Indication: PHOTOSENSITIVITY REACTION
     Route: 048
     Dates: start: 20190501

REACTIONS (1)
  - Pericardial effusion [Not Recovered/Not Resolved]

NARRATIVE: CASE EVENT DATE: 20190801
